FAERS Safety Report 11203735 (Version 4)
Quarter: 2016Q1

REPORT INFORMATION
  Report Type: Report from Study
  Country: BR (occurrence: BR)
  Receive Date: 20150619
  Receipt Date: 20160304
  Transmission Date: 20160525
  Serious: Yes (Hospitalization, Disabling, Other)
  Sender: FDA-Public Use
  Company Number: BR-ABBVIE-15K-020-1409261-00

PATIENT
  Age: 50 Year
  Sex: Female
  Weight: 55 kg

DRUGS (17)
  1. OMEPRAZOLE. [Concomitant]
     Active Substance: OMEPRAZOLE
     Indication: PROPHYLAXIS
     Route: 048
  2. OMEPRAZOLE. [Concomitant]
     Active Substance: OMEPRAZOLE
     Indication: GASTRIC DISORDER
  3. METFORMIN [Concomitant]
     Active Substance: METFORMIN HYDROCHLORIDE
     Indication: DIABETES MELLITUS
     Route: 048
     Dates: start: 2007
  4. AAS [Concomitant]
     Active Substance: ASPIRIN
     Indication: ANTICOAGULANT THERAPY
     Route: 048
     Dates: start: 201407
  5. AAS [Concomitant]
     Active Substance: ASPIRIN
     Indication: VENOUS OCCLUSION
  6. AAS [Concomitant]
     Active Substance: ASPIRIN
     Indication: PROPHYLAXIS
  7. CLONAZEPAM. [Concomitant]
     Active Substance: CLONAZEPAM
     Indication: DEPRESSION
     Route: 048
     Dates: start: 2005
  8. HIDANTAL [Concomitant]
     Active Substance: PHENYTOIN SODIUM
     Indication: CEREBRAL INFARCTION
     Route: 048
     Dates: start: 201407
  9. AEROLIN [Concomitant]
     Active Substance: ALBUTEROL
     Indication: ASTHMA
     Route: 048
  10. AMYTRIL [Concomitant]
     Active Substance: AMITRIPTYLINE HYDROCHLORIDE
     Indication: HEADACHE
  11. HIDANTAL [Concomitant]
     Active Substance: PHENYTOIN SODIUM
     Indication: MENTAL DISORDER
  12. HUMIRA [Suspect]
     Active Substance: ADALIMUMAB
     Indication: PSORIATIC ARTHROPATHY
     Route: 058
     Dates: start: 20121130
  13. SALBUTAMOL SULFATE [Concomitant]
     Active Substance: ALBUTEROL SULFATE
     Indication: ASTHMA
     Route: 048
  14. RIVOTRIL [Concomitant]
     Active Substance: CLONAZEPAM
     Indication: DEPRESSION
     Route: 048
     Dates: start: 2001
  15. RISPERIDONE. [Concomitant]
     Active Substance: RISPERIDONE
     Indication: DEPRESSION
     Route: 048
     Dates: start: 201506
  16. AMYTRIL [Concomitant]
     Active Substance: AMITRIPTYLINE HYDROCHLORIDE
     Indication: SEDATIVE THERAPY
     Route: 048
     Dates: start: 2001
  17. HIDANTAL [Concomitant]
     Active Substance: PHENYTOIN SODIUM
     Indication: SEIZURE

REACTIONS (31)
  - Speech disorder [Recovering/Resolving]
  - Cerebral infarction [Recovering/Resolving]
  - Hypertension [Unknown]
  - Mental impairment [Recovering/Resolving]
  - Malaise [Unknown]
  - Mental disorder [Not Recovered/Not Resolved]
  - Blepharitis [Not Recovered/Not Resolved]
  - Anxiety [Unknown]
  - Nervousness [Recovered/Resolved]
  - Agitation [Recovered/Resolved]
  - Dyspnoea [Recovered/Resolved]
  - Bronchitis [Recovering/Resolving]
  - Cerebrovascular accident [Recovered/Resolved]
  - Seizure [Recovered/Resolved]
  - Joint swelling [Not Recovered/Not Resolved]
  - Intracranial mass [Not Recovered/Not Resolved]
  - Cerebral infarction [Recovered/Resolved with Sequelae]
  - Depression [Not Recovered/Not Resolved]
  - Localised oedema [Not Recovered/Not Resolved]
  - Cerebrovascular accident [Recovered/Resolved]
  - Psoriasis [Not Recovered/Not Resolved]
  - Pain [Unknown]
  - Cardiac discomfort [Recovered/Resolved]
  - Hypertension [Recovered/Resolved]
  - Seizure [Unknown]
  - Cerebrovascular accident [Recovered/Resolved with Sequelae]
  - Asthmatic crisis [Unknown]
  - Memory impairment [Not Recovered/Not Resolved]
  - Arthritis [Not Recovered/Not Resolved]
  - Chest discomfort [Recovered/Resolved]
  - Psoriasis [Recovered/Resolved]

NARRATIVE: CASE EVENT DATE: 20140627
